FAERS Safety Report 20287546 (Version 1)
Quarter: 2022Q1

REPORT INFORMATION
  Report Type: Spontaneous
  Country: CA (occurrence: CA)
  Receive Date: 20220103
  Receipt Date: 20220103
  Transmission Date: 20220423
  Serious: Yes (Death, Hospitalization)
  Sender: FDA-Public Use
  Company Number: None

PATIENT
  Age: 74 Year
  Sex: Female
  Weight: 48 kg

DRUGS (13)
  1. FLUOROURACIL [Suspect]
     Active Substance: FLUOROURACIL
     Indication: Product used for unknown indication
  2. OXALIPLATIN [Suspect]
     Active Substance: OXALIPLATIN
     Indication: Adenocarcinoma
  3. FOLIC ACID [Suspect]
     Active Substance: FOLIC ACID
     Indication: Adenocarcinoma
  4. AMLODIPINE [Concomitant]
     Active Substance: AMLODIPINE BESYLATE
  5. CALCIUM CARBONATE [Concomitant]
     Active Substance: CALCIUM CARBONATE
  6. LOPERAMIDE [Concomitant]
     Active Substance: LOPERAMIDE
  7. MAGNESIUM [Concomitant]
     Active Substance: MAGNESIUM
  8. METOPROLOL [Concomitant]
     Active Substance: METOPROLOL
  9. OLANZAPINE [Concomitant]
     Active Substance: OLANZAPINE
  10. ONEALFA [Concomitant]
     Active Substance: ALFACALCIDOL
  11. OXAZEPAM [Concomitant]
     Active Substance: OXAZEPAM
  12. PANTOPRAZOLE [Concomitant]
     Active Substance: PANTOPRAZOLE
     Dosage: POWDER FOR SOLUTION INTRAVENOUS
  13. POTASSIUM [Concomitant]
     Active Substance: POTASSIUM
     Dosage: SOLUTION INTRAVENOUS

REACTIONS (2)
  - Febrile neutropenia [Fatal]
  - Off label use [Unknown]
